FAERS Safety Report 16971557 (Version 2)
Quarter: 2019Q4

REPORT INFORMATION
  Report Type: Spontaneous
  Country: US (occurrence: US)
  Receive Date: 20191029
  Receipt Date: 20191115
  Transmission Date: 20200122
  Serious: Yes (Life-Threatening, Hospitalization)
  Sender: FDA-Public Use
  Company Number: US-TEVA-2019-US-1128789

PATIENT
  Age: 31 Year
  Sex: Male

DRUGS (1)
  1. FENTANYL ADULTERATED COCAINE (FANCY COCAINE) [Suspect]
     Active Substance: FENTANYL
     Route: 045

REACTIONS (4)
  - Pulmonary alveolar haemorrhage [Recovering/Resolving]
  - Unresponsive to stimuli [Recovering/Resolving]
  - Pneumonia aspiration [Recovering/Resolving]
  - Overdose [Unknown]
